FAERS Safety Report 7812856-0 (Version None)
Quarter: 2011Q4

REPORT INFORMATION
  Report Type: 
  Country: None (occurrence: None)
  Receive Date: 20111013
  Receipt Date: 20111006
  Transmission Date: 20120403
  Serious: Yes (Hospitalization)
  Sender: FDA-Public Use
  Company Number: US-ABBOTT-11P-163-0861568-00

PATIENT
  Sex: Female

DRUGS (4)
  1. HUMIRA [Suspect]
     Indication: RHEUMATOID ARTHRITIS
     Route: 058
     Dates: start: 20110101, end: 20110801
  2. IBUPROFEN [Concomitant]
     Indication: ARTHRALGIA
  3. LYRICA [Concomitant]
     Indication: FIBROMYALGIA
  4. INSULIN [Concomitant]
     Indication: DIABETES MELLITUS
     Dosage: 70/30

REACTIONS (7)
  - CHEST DISCOMFORT [None]
  - DYSPNOEA [None]
  - CORONARY ARTERY OCCLUSION [None]
  - BLOOD GLUCOSE INCREASED [None]
  - INCISION SITE INFECTION [None]
  - WOUND DEHISCENCE [None]
  - CARDIAC ENZYMES INCREASED [None]
